FAERS Safety Report 18974167 (Version 1)
Quarter: 2021Q1

REPORT INFORMATION
  Report Type: Spontaneous
  Country: US (occurrence: US)
  Receive Date: 20210305
  Receipt Date: 20210305
  Transmission Date: 20210420
  Serious: Yes (Hospitalization)
  Sender: FDA-Public Use
  Company Number: US-VELOXIS PHARMACEUTICALS-2021VELUS-000173

PATIENT
  Age: 59 Year
  Sex: Female

DRUGS (3)
  1. ENVARSUS XR [Suspect]
     Active Substance: TACROLIMUS
     Indication: PRODUCT USED FOR UNKNOWN INDICATION
     Dosage: 9.75 MG, QD (STRENGTH 0.75 MG)
     Dates: start: 202011
  2. ENVARSUS XR [Suspect]
     Active Substance: TACROLIMUS
     Dosage: 9.75 MG, QD (STRENGTH 4 MG)
     Dates: start: 202011
  3. ENVARSUS XR [Suspect]
     Active Substance: TACROLIMUS
     Dosage: 9.75 MG, QD (STRENGTH 1 MG)
     Dates: start: 202011

REACTIONS (1)
  - Joint swelling [Unknown]

NARRATIVE: CASE EVENT DATE: 202102
